FAERS Safety Report 24061444 (Version 3)
Quarter: 2024Q3

REPORT INFORMATION
  Report Type: Spontaneous
  Country: GB (occurrence: GB)
  Receive Date: 20240708
  Receipt Date: 20240903
  Transmission Date: 20241017
  Serious: Yes (Other)
  Sender: MYLAN
  Company Number: GB-MYLANLABS-2024M1063007

PATIENT
  Sex: Male

DRUGS (2)
  1. CLOZARIL [Suspect]
     Active Substance: CLOZAPINE
     Indication: Schizophrenia
     Dosage: UNK (STOP DATE: REPORTED AS 4-5 MONTHS AGO)
     Route: 048
     Dates: start: 20230425, end: 2024
  2. CLOZARIL [Suspect]
     Active Substance: CLOZAPINE
     Dosage: UNK (4 DOSES OF 12.5 MG AND 4 DOSES OF 25 MG)
     Route: 048
     Dates: start: 20240705, end: 20240813

REACTIONS (3)
  - Schizophrenia [Unknown]
  - Hallucination, auditory [Unknown]
  - Treatment noncompliance [Unknown]
